FAERS Safety Report 7042550-8 (Version None)
Quarter: 2010Q4

REPORT INFORMATION
  Report Type: 
  Country: None (occurrence: None)
  Receive Date: 20101013
  Receipt Date: 20100217
  Transmission Date: 20110411
  Serious: No
  Sender: FDA-Public Use
  Company Number: US-ASTRAZENECA-2009SE26583

PATIENT
  Age: 63 Year
  Sex: Female
  Weight: 119.7 kg

DRUGS (2)
  1. SYMBICORT [Suspect]
     Indication: ASTHMA
     Dosage: 640 MICROGRAMS
     Route: 055
     Dates: start: 20090101, end: 20090101
  2. VENTOLIN [Concomitant]

REACTIONS (5)
  - CHEST PAIN [None]
  - DYSPHAGIA [None]
  - DYSPNOEA [None]
  - MUSCLE SPASMS [None]
  - PRURITUS [None]
